FAERS Safety Report 18900454 (Version 3)
Quarter: 2021Q1

REPORT INFORMATION
  Report Type: Spontaneous
  Country: US (occurrence: US)
  Receive Date: 20210217
  Receipt Date: 20210304
  Transmission Date: 20210420
  Serious: Yes (Hospitalization)
  Sender: FDA-Public Use
  Company Number: US-ALXN-A202102064

PATIENT
  Age: 34 Year
  Sex: Female

DRUGS (1)
  1. ULTOMIRIS [Suspect]
     Active Substance: RAVULIZUMAB-CWVZ
     Indication: PAROXYSMAL NOCTURNAL HAEMOGLOBINURIA
     Dosage: UNK
     Route: 042
     Dates: start: 20191031

REACTIONS (7)
  - Infection [Recovered/Resolved]
  - Malaise [Not Recovered/Not Resolved]
  - SARS-CoV-2 test negative [Unknown]
  - Rash [Recovered/Resolved]
  - Illness [Unknown]
  - Migraine [Not Recovered/Not Resolved]
  - Influenza like illness [Recovered/Resolved]

NARRATIVE: CASE EVENT DATE: 202008
